FAERS Safety Report 7253104-2 (Version None)
Quarter: 2011Q1

REPORT INFORMATION
  Report Type: 
  Country: None (occurrence: None)
  Receive Date: 20110129
  Receipt Date: 20100211
  Transmission Date: 20110831
  Serious: No
  Sender: FDA-Public Use
  Company Number: US-ABBOTT-10P-163-0625676-00

PATIENT
  Sex: Female
  Weight: 102.15 kg

DRUGS (1)
  1. HUMIRA [Suspect]
     Indication: RHEUMATOID ARTHRITIS
     Dates: start: 20100126

REACTIONS (6)
  - INFLUENZA LIKE ILLNESS [None]
  - COUGH [None]
  - PYREXIA [None]
  - CHILLS [None]
  - HEADACHE [None]
  - PAIN [None]
